FAERS Safety Report 6388992-5 (Version None)
Quarter: 2009Q4

REPORT INFORMATION
  Report Type: 
  Country: None (occurrence: None)
  Receive Date: 20091001
  Receipt Date: 20090922
  Transmission Date: 20100525
  Serious: Yes (Life-Threatening)
  Sender: FDA-Public Use
  Company Number: ADR27512009

PATIENT
  Age: 65 Year
  Sex: Female

DRUGS (3)
  1. RAMIPRIL [Suspect]
     Indication: BLOOD PRESSURE INCREASED
     Dosage: 5 MG, ORAL
     Route: 048
  2. BENDROFLUAZIDE [Concomitant]
  3. FLEET PHOSPHO-SODA [Concomitant]

REACTIONS (6)
  - BLOOD ELECTROLYTES ABNORMAL [None]
  - BLOOD POTASSIUM DECREASED [None]
  - BLOOD SODIUM DECREASED [None]
  - BLOOD UREA DECREASED [None]
  - CONVULSION [None]
  - WATER INTOXICATION [None]
